FAERS Safety Report 6450875-X (Version None)
Quarter: 2009Q4

REPORT INFORMATION
  Report Type: 
  Country: None (occurrence: None)
  Receive Date: 20091123
  Receipt Date: 20090409
  Transmission Date: 20100525
  Serious: Yes (Hospitalization)
  Sender: FDA-Public Use
  Company Number: US-AMGEN-QUU341110

PATIENT
  Sex: Female

DRUGS (6)
  1. ENBREL [Suspect]
     Indication: PSORIATIC ARTHROPATHY
     Route: 058
     Dates: start: 20010601, end: 20090301
  2. ENBREL [Suspect]
     Indication: PSORIASIS
  3. METHOTREXATE [Concomitant]
     Dates: start: 20010101
  4. LYRICA [Concomitant]
     Dates: start: 20080107
  5. PREDNISONE [Concomitant]
     Dates: start: 20081211
  6. VICODIN [Concomitant]
     Dates: start: 20010101

REACTIONS (1)
  - LUNG ADENOCARCINOMA [None]
